FAERS Safety Report 7659177-7 (Version None)
Quarter: 2011Q3

REPORT INFORMATION
  Report Type: 
  Country: None (occurrence: None)
  Receive Date: 20110805
  Receipt Date: 20110728
  Transmission Date: 20111222
  Serious: Yes (Other)
  Sender: FDA-Public Use
  Company Number: GB-GLAXOSMITHKLINE-B0737159A

PATIENT
  Sex: Female

DRUGS (4)
  1. CHLORAMBUCIL [Suspect]
     Indication: CHRONIC LYMPHOCYTIC LEUKAEMIA
     Route: 048
     Dates: start: 20110110, end: 20110705
  2. ALBUTEROL [Concomitant]
     Dates: start: 20110531
  3. COTRIM [Concomitant]
     Dates: start: 20110110
  4. STUDY MEDICATION [Suspect]
     Indication: CHRONIC LYMPHOCYTIC LEUKAEMIA
     Route: 042
     Dates: start: 20110110, end: 20110705

REACTIONS (1)
  - PNEUMONITIS [None]
